FAERS Safety Report 7533086-6 (Version None)
Quarter: 2011Q2

REPORT INFORMATION
  Report Type: 
  Country: None (occurrence: None)
  Receive Date: 20110608
  Receipt Date: 20110601
  Transmission Date: 20111010
  Serious: Yes (Other)
  Sender: FDA-Public Use
  Company Number: US-PFIZER INC-2011074465

PATIENT
  Sex: Female
  Weight: 56.689 kg

DRUGS (7)
  1. LEVOTHYROXINE [Concomitant]
     Dosage: 1000 MG, UNK
  2. HYDROCHLOROTHIAZIDE [Concomitant]
     Dosage: 25 MG, UNK
  3. ADVIL PM [Suspect]
     Indication: INSOMNIA
     Dosage: 400/76 MG, DAILY
     Route: 048
  4. ADVIL PM [Suspect]
     Dosage: UNK
  5. SPIRIVA [Concomitant]
     Indication: DYSPNOEA
     Dosage: UNK
  6. LISINOPRIL [Concomitant]
     Dosage: 20 MG, UNK
  7. ADVAIR DISKUS 100/50 [Concomitant]
     Indication: DYSPNOEA
     Dosage: UNK

REACTIONS (1)
  - MEMORY IMPAIRMENT [None]
